FAERS Safety Report 16730513 (Version 2)
Quarter: 2019Q3

REPORT INFORMATION
  Report Type: Spontaneous
  Country: US (occurrence: US)
  Receive Date: 20190822
  Receipt Date: 20190917
  Transmission Date: 20191005
  Serious: No
  Sender: FDA-Public Use
  Company Number: US-JNJFOC-20190823933

PATIENT
  Sex: Female
  Weight: 70.37 kg

DRUGS (5)
  1. RISPERDAL [Suspect]
     Active Substance: RISPERIDONE
     Indication: DRUG THERAPY
     Dosage: ONE AT BEDTIME
     Route: 048
  2. RISPERDAL [Suspect]
     Active Substance: RISPERIDONE
     Dosage: ONE AT BEDTIME
     Route: 048
     Dates: start: 201906, end: 201907
  3. GABAPENTIN. [Concomitant]
     Active Substance: GABAPENTIN
     Indication: PRODUCT USED FOR UNKNOWN INDICATION
     Route: 065
  4. RISPERDAL [Suspect]
     Active Substance: RISPERIDONE
     Dosage: ONE AT BEDTIME
     Route: 048
     Dates: start: 201907, end: 201908
  5. RISPERDAL [Suspect]
     Active Substance: RISPERIDONE
     Dosage: ONE AT BEDTIME
     Route: 048

REACTIONS (5)
  - Breast discharge [Recovered/Resolved]
  - Adverse drug reaction [Unknown]
  - Off label use [Unknown]
  - Product use in unapproved indication [Unknown]
  - Drug ineffective [Unknown]

NARRATIVE: CASE EVENT DATE: 2019
